FAERS Safety Report 5671844-3 (Version None)
Quarter: 2008Q1

REPORT INFORMATION
  Report Type: 
  Country: None (occurrence: None)
  Receive Date: 20080314
  Receipt Date: 20080307
  Transmission Date: 20080703
  Serious: Yes (Hospitalization, Other)
  Sender: FDA-Public Use
  Company Number: 2008AP000455

PATIENT
  Age: 65 Year
  Sex: Female

DRUGS (9)
  1. PAROXETINE HCL [Suspect]
  2. METHYLENE BLUE (METHYLTHIONINIUM CHLORIDE) [Suspect]
     Dosage: 200 MG;INJECT;IV;1X
     Route: 042
  3. INSULIN HUMAN INJECTION, ISOPHANE (INSULIN HUMAN INJECTION, ISOPHANE) [Concomitant]
  4. METFORMIN HCL [Concomitant]
  5. RAMIPRIL [Concomitant]
  6. ATENOLOL [Concomitant]
  7. ACETYLSALICYLIC ACID SRT [Concomitant]
  8. SIMVASTATIN [Concomitant]
  9. CARBIMAZOLE (CARBIMAZOLE) [Concomitant]

REACTIONS (10)
  - AGITATION [None]
  - BLOOD GLUCOSE INCREASED [None]
  - BLOOD PRESSURE SYSTOLIC INCREASED [None]
  - CONFUSIONAL STATE [None]
  - DRUG INTERACTION [None]
  - RESTLESSNESS [None]
  - SEROTONIN SYNDROME [None]
  - SOMNOLENCE [None]
  - SPEECH DISORDER [None]
  - UNRESPONSIVE TO STIMULI [None]
